FAERS Safety Report 13385692 (Version 1)
Quarter: 2017Q1

REPORT INFORMATION
  Report Type: Report from Study
  Country: US (occurrence: US)
  Receive Date: 20170330
  Receipt Date: 20170330
  Transmission Date: 20170429
  Serious: Yes (Hospitalization, Other)
  Sender: FDA-Public Use
  Company Number: US-ARIAD-2015US005422

PATIENT
  Age: 46 Year
  Sex: Female

DRUGS (3)
  1. ICLUSIG [Suspect]
     Active Substance: PONATINIB
     Indication: ACUTE LYMPHOCYTIC LEUKAEMIA
     Dosage: UNK
     Route: 048
     Dates: start: 2012
  2. ICLUSIG [Suspect]
     Active Substance: PONATINIB
     Dosage: 30 MG, QD
     Route: 048
     Dates: start: 20150529
  3. ICLUSIG [Suspect]
     Active Substance: PONATINIB
     Dosage: 45 MG, QD
     Route: 048

REACTIONS (22)
  - Acute lymphocytic leukaemia recurrent [Unknown]
  - Rhinitis [Recovered/Resolved]
  - White blood cell count decreased [Unknown]
  - Bone marrow failure [Recovering/Resolving]
  - Cytopenia [Unknown]
  - Blast cells present [Unknown]
  - Throat irritation [Unknown]
  - Musculoskeletal discomfort [Unknown]
  - Pyrexia [Not Recovered/Not Resolved]
  - Neck pain [Recovered/Resolved]
  - Pallor [Unknown]
  - Monocyte count decreased [Unknown]
  - Chest discomfort [Unknown]
  - Cough [Recovering/Resolving]
  - Lymphocyte count decreased [Unknown]
  - Lymph node pain [Recovered/Resolved]
  - Platelet count decreased [Unknown]
  - Neutrophil count decreased [Unknown]
  - Bronchitis [Recovering/Resolving]
  - Chemotherapy [Unknown]
  - Lymphadenopathy [Recovered/Resolved]
  - Condition aggravated [Unknown]

NARRATIVE: CASE EVENT DATE: 20170302
